FAERS Safety Report 12442098 (Version 1)
Quarter: 2016Q2

REPORT INFORMATION
  Report Type: Spontaneous
  Country: US (occurrence: None)
  Receive Date: 20160606
  Receipt Date: 20160606
  Transmission Date: 20160815
  Serious: Yes (Hospitalization)
  Sender: FDA-Public Use
  Company Number: None

PATIENT
  Age: 68 Year
  Sex: Male
  Weight: 107.7 kg

DRUGS (1)
  1. THEOPHYLLINE [Suspect]
     Active Substance: THEOPHYLLINE ANHYDROUS
     Indication: CHRONIC OBSTRUCTIVE PULMONARY DISEASE
     Dosage: 600MG ONCE PO
     Route: 048
     Dates: start: 20150712, end: 20150712

REACTIONS (1)
  - Tachycardia [None]

NARRATIVE: CASE EVENT DATE: 20150713
